FAERS Safety Report 25228874 (Version 1)
Quarter: 2025Q2

REPORT INFORMATION
  Report Type: Report from Study
  Country: CA (occurrence: CA)
  Receive Date: 20250423
  Receipt Date: 20250423
  Transmission Date: 20250717
  Serious: Yes (Hospitalization)
  Sender: ROCHE
  Company Number: CA-ROCHE-2035138

PATIENT
  Age: 32 Year
  Sex: Female

DRUGS (7)
  1. RITUXAN [Suspect]
     Active Substance: RITUXIMAB
     Indication: Vasculitis
     Dosage: LAST RITUXAN INFUSION WAS RECEIVED ON 07/AUG/2019
     Route: 042
     Dates: start: 20161024, end: 20210212
  2. RITUXAN [Suspect]
     Active Substance: RITUXIMAB
     Indication: Neuromyelitis optica spectrum disorder
  3. IMURAN [Suspect]
     Active Substance: AZATHIOPRINE
     Indication: Product used for unknown indication
     Route: 065
  4. OMEGA 3 [Concomitant]
     Active Substance: CAPSAICIN
  5. PREDNISONE [Concomitant]
     Active Substance: PREDNISONE
     Indication: Premedication
     Route: 042
     Dates: start: 20161024
  6. ACETAMINOPHEN [Concomitant]
     Active Substance: ACETAMINOPHEN
     Indication: Premedication
     Route: 048
     Dates: start: 20161024
  7. DIPHENHYDRAMINE HYDROCHLORIDE [Concomitant]
     Active Substance: DIPHENHYDRAMINE HYDROCHLORIDE
     Indication: Premedication
     Route: 048
     Dates: start: 20161024

REACTIONS (8)
  - Joint stiffness [Unknown]
  - Cough [Unknown]
  - Mouth ulceration [Unknown]
  - Pneumocystis jirovecii infection [Unknown]
  - Treatment failure [Unknown]
  - Off label use [Unknown]
  - Urticaria [Unknown]
  - Influenza [Unknown]

NARRATIVE: CASE EVENT DATE: 20190101
